FAERS Safety Report 9038758 (Version 1)
Quarter: 2013Q1

REPORT INFORMATION
  Report Type: Spontaneous
  Country: US (occurrence: None)
  Receive Date: 20130123
  Receipt Date: 20130123
  Transmission Date: 20140127
  Serious: Yes (Other)
  Sender: FDA-Public Use
  Company Number: None

PATIENT
  Age: 43 Year
  Sex: Male
  Weight: 89 kg

DRUGS (1)
  1. CHANTIX 1MG PFIZER [Suspect]
     Indication: SMOKING CESSATION THERAPY
     Route: 048

REACTIONS (4)
  - Pruritus [None]
  - Restless legs syndrome [None]
  - Poor quality sleep [None]
  - Condition aggravated [None]
